FAERS Safety Report 5872501-0 (Version None)
Quarter: 2008Q3

REPORT INFORMATION
  Report Type: 
  Country: None (occurrence: None)
  Receive Date: 20080905
  Receipt Date: 20080827
  Transmission Date: 20090109
  Serious: Yes (Hospitalization, Other)
  Sender: FDA-Public Use
  Company Number: US-TEVA-176729USA

PATIENT
  Sex: Male

DRUGS (4)
  1. FLUOROURACIL [Suspect]
     Indication: NEOPLASM
     Route: 042
     Dates: start: 20080703, end: 20080730
  2. LEUCOVORIN CALCIUM [Suspect]
     Indication: NEOPLASM
     Route: 042
     Dates: start: 20080703, end: 20080730
  3. OXALIPLATIN [Suspect]
     Indication: NEOPLASM
     Route: 042
     Dates: start: 20080703, end: 20080730
  4. BMS690514(BMS690514-INVESTIGATIONAL) [Suspect]
     Indication: NEOPLASM
     Route: 048
     Dates: start: 20080728, end: 20080808

REACTIONS (1)
  - BLOOD CREATININE INCREASED [None]
